FAERS Safety Report 23162728 (Version 2)
Quarter: 2023Q4

REPORT INFORMATION
  Report Type: Report from Study
  Country: AT (occurrence: AT)
  Receive Date: 20231109
  Receipt Date: 20231117
  Transmission Date: 20240110
  Serious: Yes (Hospitalization)
  Sender: FDA-Public Use
  Company Number: AT-GENMAB-2023-02099

PATIENT
  Age: 62 Year
  Sex: Female
  Weight: 58 kg

DRUGS (11)
  1. EPCORITAMAB [Suspect]
     Active Substance: EPCORITAMAB
     Indication: Diffuse large B-cell lymphoma
     Dosage: PRIMING DOSE; C1, D1
     Route: 058
     Dates: start: 20231011, end: 20231011
  2. EPCORITAMAB [Suspect]
     Active Substance: EPCORITAMAB
     Dosage: INTERMEDIATE DOSE; C1, D8
     Route: 058
     Dates: start: 20231018, end: 20231018
  3. EPCORITAMAB [Suspect]
     Active Substance: EPCORITAMAB
     Dosage: FULL DOSE; C1, D15 AND 22
     Route: 058
     Dates: start: 20231025
  4. RITUXIMAB [Suspect]
     Active Substance: RITUXIMAB
     Indication: Diffuse large B-cell lymphoma
     Dosage: 658.89 MG, EVERY 3 WEEKS
     Route: 042
     Dates: start: 20231010
  5. CYCLOPHOSPHAMIDE [Suspect]
     Active Substance: CYCLOPHOSPHAMIDE
     Indication: Diffuse large B-cell lymphoma
     Dosage: 1317.79 MG, EVERY 3 WEEKS
     Route: 042
     Dates: start: 20231011
  6. VINCRISTINE [Suspect]
     Active Substance: VINCRISTINE
     Indication: Diffuse large B-cell lymphoma
     Dosage: 2 MG, EVERY 3 WEEKS
     Route: 042
     Dates: start: 20231011
  7. DOXORUBICIN [Suspect]
     Active Substance: DOXORUBICIN
     Indication: Diffuse large B-cell lymphoma
     Dosage: 87.85 MG, EVERY 3 WEEKS
     Route: 042
     Dates: start: 20231011
  8. PREDNISONE [Suspect]
     Active Substance: PREDNISONE
     Indication: Diffuse large B-cell lymphoma
     Dosage: DAILY C1-6, DAY 1-5
     Route: 048
     Dates: start: 20231011
  9. TRAZODONE HYDROCHLORIDE [Concomitant]
     Active Substance: TRAZODONE HYDROCHLORIDE
     Indication: Depression
     Dosage: 50 MG, EVERY EVENING
     Dates: start: 20231018
  10. TRAZODONE HYDROCHLORIDE [Concomitant]
     Active Substance: TRAZODONE HYDROCHLORIDE
     Indication: Insomnia
  11. VIROPEL [Concomitant]
     Indication: Antiviral prophylaxis
     Dosage: 500 MG, EVERY 24 HOURS
     Dates: start: 20231010

REACTIONS (1)
  - Cytokine release syndrome [Recovered/Resolved]

NARRATIVE: CASE EVENT DATE: 20231025
